FAERS Safety Report 6039276-6 (Version None)
Quarter: 2009Q1

REPORT INFORMATION
  Report Type: 
  Country: None (occurrence: None)
  Receive Date: 20090115
  Receipt Date: 20090113
  Transmission Date: 20090719
  Serious: Yes (Death, Other)
  Sender: FDA-Public Use
  Company Number: PHEH2009US00505

PATIENT
  Sex: Female
  Weight: 90.72 kg

DRUGS (12)
  1. FEMARA [Suspect]
     Dosage: 2.5 MG, QD
     Route: 048
     Dates: start: 20080707, end: 20080801
  2. AMIODARONE HCL [Concomitant]
     Dosage: 200 MG, QD
     Route: 048
  3. ASPIRIN [Concomitant]
     Route: 048
  4. DILAUDID [Concomitant]
     Indication: PAIN
     Dosage: 2 MG, PRN
     Route: 048
  5. NASONEX [Concomitant]
  6. PERCOCET [Concomitant]
     Indication: PAIN
     Dosage: 1 Q 4HR
     Route: 048
  7. PROCARDIA [Concomitant]
     Dosage: 90 MG, QD
     Route: 048
  8. RESTORIL [Concomitant]
     Dosage: 7.5 MG, QHS
     Route: 048
  9. DOCUSATE [Concomitant]
  10. VOLTAREN                           /00372303/ [Concomitant]
     Dosage: 75 MG 2 TABLETS QD
     Route: 048
  11. ZEBETA [Concomitant]
     Dosage: 10 MG TWO QD
     Route: 048
  12. ZYRTEC [Concomitant]
     Dosage: 10 MG, PRN
     Route: 048

REACTIONS (7)
  - DEATH [None]
  - HAEMATOCRIT DECREASED [None]
  - HAEMOGLOBIN DECREASED [None]
  - MONOCYTE PERCENTAGE INCREASED [None]
  - NEUTROPHIL COUNT DECREASED [None]
  - RED BLOOD CELL COUNT DECREASED [None]
  - WHITE BLOOD CELL COUNT DECREASED [None]
